FAERS Safety Report 7086210-6 (Version None)
Quarter: 2010Q4

REPORT INFORMATION
  Report Type: 
  Country: None (occurrence: None)
  Receive Date: 20101028
  Receipt Date: 20101015
  Transmission Date: 20110411
  Serious: Yes (Other)
  Sender: FDA-Public Use
  Company Number: 020484

PATIENT
  Age: 50 Year
  Sex: Female

DRUGS (4)
  1. CIMZIA [Suspect]
     Indication: RHEUMATOID ARTHRITIS
     Dosage: (400 MG, TWO DOSES OF 200MG SUBCUTANEOUS)
     Route: 058
  2. PREZOLON [Concomitant]
  3. METHOTREXATE [Concomitant]
  4. MEDROL [Concomitant]

REACTIONS (2)
  - ANGIOEDEMA [None]
  - INJECTION SITE HYPERSENSITIVITY [None]
